FAERS Safety Report 10174514 (Version 1)
Quarter: 2014Q2

REPORT INFORMATION
  Report Type: Spontaneous
  Country: US (occurrence: None)
  Receive Date: 20140416
  Receipt Date: 20140416
  Transmission Date: 20141212
  Serious: Yes (Other)
  Sender: FDA-Public Use
  Company Number: 163-POMAL-14011650

PATIENT
  Age: 78 Year
  Sex: Female
  Weight: 63.5 kg

DRUGS (20)
  1. POMALYST (POMALIDOMIDE) (4 MILLIGRAM, CAPSULES) [Suspect]
     Indication: PLASMA CELL MYELOMA
     Dosage: 21 IN 21 D
     Route: 048
     Dates: start: 20130531
  2. FLEXERIL (CYCLOBENZAPRINE HYDROCHLORIDE) [Concomitant]
  3. OXYCODONE HCL (OXYCODONE HYDROCHLORIDE) [Concomitant]
  4. ONDANSETRON HCL (ONDANSETRON HYDROCHLORIDE) [Concomitant]
  5. VITAMIN D (ERGOCALCIFEROL) [Concomitant]
  6. VITAMIN B COMPLEX (B-KOMPLEX ^LECIVA^) [Concomitant]
  7. OSCAL (CALCIIUM CARBONATE) [Concomitant]
  8. D3 (COLECALCIFEROL) [Concomitant]
  9. MAGNESIUIM (MAGNESIUIM) [Concomitant]
  10. NEXIUM (ESOMEPRAZOLE) [Concomitant]
  11. POTASSIUM (POTASSIUM) [Concomitant]
  12. SYNTHROID (LEVOTHYROXINE SODIUIM) [Concomitant]
  13. FLUDROCORTISONE ACETATE (FLUDROCORTISONE ACETATE) [Concomitant]
  14. CYMBALTA [Concomitant]
  15. AMIODARONE HCL (AMIODARONE HYDROCHLORIDE) [Concomitant]
  16. BABY ASPIRIN (ACETYLSALICYLIC ACID) [Concomitant]
  17. ATORVASTATIN (ATORVASTATIN) [Concomitant]
  18. CALCIUM (CALCIUM) [Concomitant]
  19. ACYCLOVIR (ACICLOVIR) [Concomitant]
  20. DEXAMETHASONE (DEXAMETHASONE) [Concomitant]

REACTIONS (1)
  - Blood iron decreased [None]
